FAERS Safety Report 17751819 (Version 2)
Quarter: 2020Q2

REPORT INFORMATION
  Report Type: Spontaneous
  Country: US (occurrence: US)
  Receive Date: 20200506
  Receipt Date: 20200508
  Transmission Date: 20200714
  Serious: No
  Sender: FDA-Public Use
  Company Number: US-JNJFOC-20200504664

PATIENT
  Sex: Female
  Weight: 81.72 kg

DRUGS (4)
  1. STELARA [Suspect]
     Active Substance: USTEKINUMAB
     Indication: PSORIATIC ARTHROPATHY
     Dosage: NOT SURE EITHER MONTHLY OR EVERY 8 WEEKS
     Route: 058
     Dates: end: 20200304
  2. ZYRTEC [Concomitant]
     Active Substance: CETIRIZINE HYDROCHLORIDE
     Indication: SEASONAL ALLERGY
     Route: 065
  3. STELARA [Suspect]
     Active Substance: USTEKINUMAB
     Indication: COLITIS ULCERATIVE
  4. METACYCLINE [Concomitant]
     Indication: SKIN DISORDER
     Route: 065

REACTIONS (3)
  - Product use issue [Unknown]
  - Product dose omission [Unknown]
  - Off label use [Unknown]
